FAERS Safety Report 5717713-1 (Version None)
Quarter: 2008Q2

REPORT INFORMATION
  Report Type: 
  Country: None (occurrence: None)
  Receive Date: 20080425
  Receipt Date: 20080422
  Transmission Date: 20081010
  Serious: Yes (Hospitalization, Other)
  Sender: FDA-Public Use
  Company Number: GB-BAYER-200811067BNE

PATIENT
  Age: 73 Year
  Sex: Male

DRUGS (4)
  1. ALKA-SELTZER [Suspect]
     Indication: DRUG USE FOR UNKNOWN INDICATION
     Route: 048
     Dates: start: 20080201
  2. GAVISCON [Suspect]
     Indication: DRUG USE FOR UNKNOWN INDICATION
     Route: 048
     Dates: start: 20080201
  3. NARDIL [Suspect]
     Indication: DRUG USE FOR UNKNOWN INDICATION
     Dosage: TOTAL DAILY DOSE: 30 MG
     Route: 048
     Dates: start: 20080201
  4. ASTHMA INHALER [Concomitant]
     Indication: ASTHMA
     Route: 055

REACTIONS (6)
  - ANAPHYLACTOID REACTION [None]
  - DYSPNOEA [None]
  - HYPERSENSITIVITY [None]
  - PHARYNGEAL OEDEMA [None]
  - PSORIASIS [None]
  - URTICARIA [None]
